FAERS Safety Report 18309879 (Version 2)
Quarter: 2020Q4

REPORT INFORMATION
  Report Type: Spontaneous
  Country: JP (occurrence: JP)
  Receive Date: 20200925
  Receipt Date: 20201021
  Transmission Date: 20210113
  Serious: Yes (Other)
  Sender: FDA-Public Use
  Company Number: JP-ROCHE-2655086

PATIENT
  Age: 59 Year
  Sex: Male

DRUGS (5)
  1. LUCENTIS [Suspect]
     Active Substance: RANIBIZUMAB
     Dosage: MOST RECENT DOSE RECEIVED ON 21/JUL/2020 PRIOR TO EVENT ONSET.
     Route: 031
     Dates: start: 20200428, end: 20200428
  2. GATIFLO [Concomitant]
     Active Substance: GATIFLOXACIN
     Indication: INFECTION PROPHYLAXIS
     Route: 047
  3. LUCENTIS [Suspect]
     Active Substance: RANIBIZUMAB
     Dosage: MOST RECENT DOSE RECEIVED ON 21/JUL/2020 PRIOR TO EVENT ONSET.
     Route: 031
     Dates: start: 20200609, end: 20200609
  4. LUCENTIS [Suspect]
     Active Substance: RANIBIZUMAB
     Dosage: MOST RECENT DOSE RECEIVED ON 21/JUL/2020 PRIOR TO EVENT ONSET.
     Route: 031
     Dates: start: 20200721, end: 20200721
  5. LUCENTIS [Suspect]
     Active Substance: RANIBIZUMAB
     Indication: AGE-RELATED MACULAR DEGENERATION
     Dosage: MOST RECENT DOSE RECEIVED ON 21/JUL/2020 PRIOR TO EVENT ONSET.
     Route: 031

REACTIONS (4)
  - Staphylococcal infection [Unknown]
  - Macular detachment [Recovering/Resolving]
  - Endophthalmitis [Not Recovered/Not Resolved]
  - Retinal detachment [Recovering/Resolving]

NARRATIVE: CASE EVENT DATE: 20200727
